FAERS Safety Report 21178118 (Version 1)
Quarter: 2022Q3

REPORT INFORMATION
  Report Type: Report from Study
  Country: CA (occurrence: None)
  Receive Date: 20220805
  Receipt Date: 20220805
  Transmission Date: 20221027
  Serious: Yes (Death)
  Sender: FDA-Public Use
  Company Number: 2022A274627

PATIENT
  Age: 22075 Day
  Sex: Female

DRUGS (1)
  1. TAGRISSO [Suspect]
     Active Substance: OSIMERTINIB
     Indication: Non-small cell lung cancer metastatic
     Dosage: 40.0MG UNKNOWN
     Route: 048
     Dates: start: 20180308, end: 20210416

REACTIONS (1)
  - Death [Fatal]

NARRATIVE: CASE EVENT DATE: 20210416
